FAERS Safety Report 13031230 (Version 1)
Quarter: 2016Q4

REPORT INFORMATION
  Report Type: Spontaneous
  Country: DK (occurrence: DK)
  Receive Date: 20161215
  Receipt Date: 20161215
  Transmission Date: 20170207
  Serious: Yes (Hospitalization)
  Sender: FDA-Public Use
  Company Number: DK-SA-2016SA220854

PATIENT
  Age: 10 Month
  Sex: Male
  Weight: 3.21 kg

DRUGS (3)
  1. LANTUS [Suspect]
     Active Substance: INSULIN GLARGINE
     Route: 063
     Dates: start: 20151008, end: 20151119
  2. LANTUS [Suspect]
     Active Substance: INSULIN GLARGINE
     Route: 064
     Dates: start: 20150129, end: 20151008
  3. NOVORAPID [Concomitant]
     Active Substance: INSULIN ASPART
     Route: 063
     Dates: start: 20151008, end: 20151119

REACTIONS (3)
  - Exposure during breast feeding [Unknown]
  - Pneumonia [Recovered/Resolved]
  - Foetal exposure during pregnancy [Unknown]

NARRATIVE: CASE EVENT DATE: 20150129
